FAERS Safety Report 4376766-6 (Version None)
Quarter: 2004Q2

REPORT INFORMATION
  Report Type: 
  Country: None (occurrence: None)
  Receive Date: 20040609
  Receipt Date: 20040322
  Transmission Date: 20050107
  Serious: Yes (Other)
  Sender: FDA-Public Use
  Company Number: 2004200444US

PATIENT
  Age: 68 Year
  Sex: Female
  Weight: 98 kg

DRUGS (4)
  1. BEXTRA [Suspect]
     Indication: OSTEOARTHRITIS
     Dosage: SEE IMAGE
     Dates: end: 20031002
  2. BEXTRA [Suspect]
     Indication: OSTEOARTHRITIS
     Dosage: SEE IMAGE
     Dates: start: 20020812
  3. MONOPRIL [Concomitant]
  4. SYNTHROID [Concomitant]

REACTIONS (2)
  - ATRIAL FIBRILLATION [None]
  - DYSPNOEA [None]
